FAERS Safety Report 4341767-0 (Version None)
Quarter: 2004Q2

REPORT INFORMATION
  Report Type: 
  Country: None (occurrence: None)
  Receive Date: 20040415
  Receipt Date: 20040402
  Transmission Date: 20050107
  Serious: Yes (Hospitalization)
  Sender: FDA-Public Use
  Company Number: 8004733

PATIENT
  Age: 16 Year
  Sex: Female
  Weight: 50 kg

DRUGS (3)
  1. KEPPRA [Suspect]
     Indication: COMPLEX PARTIAL SEIZURES
     Dosage: 2500 MG PO
     Route: 048
     Dates: start: 20030201
  2. KEPPRA [Suspect]
     Indication: EPILEPSY
     Dosage: 2500 MG PO
     Route: 048
     Dates: start: 20030201
  3. DIHYDANTOIN [Concomitant]

REACTIONS (2)
  - CONDITION AGGRAVATED [None]
  - OBSESSIVE-COMPULSIVE DISORDER [None]
